FAERS Safety Report 18217808 (Version 6)
Quarter: 2020Q3

REPORT INFORMATION
  Report Type: Spontaneous
  Country: AT (occurrence: AT)
  Receive Date: 20200901
  Receipt Date: 20200921
  Transmission Date: 20201103
  Serious: Yes (Hospitalization)
  Sender: FDA-Public Use
  Company Number: AT-MYLANLABS-2020M1075880

PATIENT
  Age: 46 Year
  Sex: Female
  Weight: 89 kg

DRUGS (3)
  1. ALPRAZOLAM. [Concomitant]
     Active Substance: ALPRAZOLAM
     Indication: ANXIOLYTIC THERAPY
     Dosage: 1 MILLIGRAM P.O.
     Route: 048
  2. METFORMIN [Concomitant]
     Active Substance: METFORMIN HYDROCHLORIDE
     Indication: FOOD CRAVING
     Dosage: 1000 MG P.O.
     Route: 048
  3. LEPONEX [Suspect]
     Active Substance: CLOZAPINE
     Indication: SCHIZOPHRENIA
     Dosage: 125 MILLIGRAM, QD, 125 MG, QD, (P.O.)
     Route: 048
     Dates: start: 20200706, end: 20200722

REACTIONS (10)
  - Pyrexia [Recovered/Resolved]
  - Febrile infection [Recovered/Resolved]
  - C-reactive protein increased [Recovered/Resolved]
  - Diarrhoea [Recovered/Resolved]
  - Somnolence [Not Recovered/Not Resolved]
  - Troponin T increased [Recovering/Resolving]
  - Myocardial necrosis marker increased [Recovering/Resolving]
  - Asthenia [Recovering/Resolving]
  - Myocarditis [Recovering/Resolving]
  - Left ventricular dysfunction [Unknown]

NARRATIVE: CASE EVENT DATE: 202007
